FAERS Safety Report 6647063-0 (Version None)
Quarter: 2010Q1

REPORT INFORMATION
  Report Type: 
  Country: None (occurrence: None)
  Receive Date: 20100318
  Receipt Date: 20100309
  Transmission Date: 20100710
  Serious: Yes (Life-Threatening, Hospitalization)
  Sender: FDA-Public Use
  Company Number: DSU-2010-01084

PATIENT
  Weight: 90.2658 kg

DRUGS (9)
  1. BENICAR [Suspect]
     Indication: DRUG USE FOR UNKNOWN INDICATION
     Dosage: PER ORAL
     Route: 048
  2. LYRICA [Suspect]
     Indication: DRUG USE FOR UNKNOWN INDICATION
     Dosage: 300 MG (100 MG,TID),PER ORAL
     Route: 048
     Dates: start: 20090625
  3. XANAX [Suspect]
     Indication: DRUG USE FOR UNKNOWN INDICATION
  4. SAVELLA [Suspect]
     Indication: DRUG USE FOR UNKNOWN INDICATION
  5. DIOVAN [Concomitant]
  6. EFFEXOR (VENLAFAXINE HYDROCHLORIDE) (VENLAFAXINE HYDROCHLORIDE) [Concomitant]
  7. TRAMADOL HCL [Concomitant]
  8. VYTORIN [Concomitant]
  9. ASPIRIN [Concomitant]

REACTIONS (2)
  - SUICIDAL IDEATION [None]
  - SUICIDE ATTEMPT [None]
